FAERS Safety Report 25852009 (Version 1)
Quarter: 2025Q3

REPORT INFORMATION
  Report Type: Spontaneous
  Country: US (occurrence: US)
  Receive Date: 20250926
  Receipt Date: 20250926
  Transmission Date: 20251021
  Serious: Yes (Other)
  Sender: EPIC PHARM
  Company Number: US-EPICPHARMA-US-2025EPCSPO01105

PATIENT
  Age: 93 Year
  Sex: Female
  Weight: 49 kg

DRUGS (9)
  1. RIFAMPIN [Suspect]
     Active Substance: RIFAMPIN
     Indication: Mycobacterium avium complex infection
     Route: 065
  2. RIFAMPIN [Suspect]
     Active Substance: RIFAMPIN
     Route: 065
     Dates: start: 20200616, end: 20250714
  3. RIFAMPIN [Suspect]
     Active Substance: RIFAMPIN
     Route: 065
     Dates: start: 2025
  4. AZITHROMYCIN [Suspect]
     Active Substance: AZITHROMYCIN
     Indication: Mycobacterium avium complex infection
     Route: 065
  5. AZITHROMYCIN [Suspect]
     Active Substance: AZITHROMYCIN
     Route: 065
     Dates: start: 20200616, end: 20250714
  6. AZITHROMYCIN [Suspect]
     Active Substance: AZITHROMYCIN
     Route: 065
     Dates: start: 2025
  7. ETHAMBUTOL HYDROCHLORIDE [Suspect]
     Active Substance: ETHAMBUTOL HYDROCHLORIDE
     Indication: Product used for unknown indication
     Route: 065
  8. LAMPRENE [Suspect]
     Active Substance: CLOFAZIMINE
     Indication: Mycobacterium avium complex infection
     Route: 048
     Dates: start: 20250528, end: 20250714
  9. LAMPRENE [Suspect]
     Active Substance: CLOFAZIMINE
     Route: 065
     Dates: start: 20250808

REACTIONS (4)
  - Squamous cell carcinoma [Recovered/Resolved]
  - Optic neuritis [Unknown]
  - Visual impairment [Recovered/Resolved]
  - Product use in unapproved indication [Unknown]

NARRATIVE: CASE EVENT DATE: 20250625
